FAERS Safety Report 4892593-5 (Version None)
Quarter: 2006Q1

REPORT INFORMATION
  Report Type: 
  Country: None (occurrence: None)
  Receive Date: 20060126
  Receipt Date: 20060118
  Transmission Date: 20060701
  Serious: Yes (Other)
  Sender: FDA-Public Use
  Company Number: GR-ROCHE-432747

PATIENT
  Age: 32 Year
  Sex: Female

DRUGS (2)
  1. PEGASYS [Suspect]
     Indication: HEPATITIS INFECTIOUS
     Route: 058
  2. PEG-INTRON [Concomitant]
     Indication: HEPATITIS INFECTIOUS

REACTIONS (1)
  - CHOLESTASIS [None]
